FAERS Safety Report 4647218-0 (Version None)
Quarter: 2005Q2

REPORT INFORMATION
  Report Type: 
  Country: None (occurrence: None)
  Receive Date: 20050426
  Receipt Date: 20050418
  Transmission Date: 20051028
  Serious: Yes (Life-Threatening, Hospitalization)
  Sender: FDA-Public Use
  Company Number: 2005-124081-NL

PATIENT
  Age: 34 Year
  Sex: Female

DRUGS (1)
  1. NUVARING [Suspect]
     Indication: CONTRACEPTION
     Dosage: DF; VAGINAL
     Route: 067
     Dates: start: 20041018, end: 20041108

REACTIONS (7)
  - CONJUNCTIVITIS [None]
  - DYSMENORRHOEA [None]
  - HYPOTONIA [None]
  - PLATELET COUNT DECREASED [None]
  - RASH [None]
  - RENAL FAILURE [None]
  - TOXIC SHOCK SYNDROME [None]
